FAERS Safety Report 17458643 (Version 1)
Quarter: 2020Q1

REPORT INFORMATION
  Report Type: Report from Study
  Country: US (occurrence: US)
  Receive Date: 20200225
  Receipt Date: 20200225
  Transmission Date: 20200409
  Serious: Yes (Hospitalization)
  Sender: FDA-Public Use
  Company Number: US-PFIZER INC-2019555774

PATIENT
  Age: 17 Year
  Sex: Male
  Weight: 68 kg

DRUGS (9)
  1. INCB018424 [Suspect]
     Active Substance: RUXOLITINIB
     Indication: B-CELL PROLYMPHOCYTIC LEUKAEMIA
     Dosage: TABLET, 95 MILLIGRAM, QD (14 DAYS ON/OFF)
     Route: 048
     Dates: start: 20191014, end: 20191209
  2. PREDNISONE. [Suspect]
     Active Substance: PREDNISONE
     Indication: B-CELL PROLYMPHOCYTIC LEUKAEMIA
     Dosage: TABLET, 40 MG/35MG, BID (5 DAYS)
     Route: 048
     Dates: start: 20191014
  3. METHOTREXATE. [Suspect]
     Active Substance: METHOTREXATE
     Dosage: TABLET, 37.5 MG, WEEKLY
     Route: 048
     Dates: start: 20191216
  4. METHOTREXATE. [Suspect]
     Active Substance: METHOTREXATE
     Indication: B-CELL PROLYMPHOCYTIC LEUKAEMIA
     Dosage: TABLET, 37.5 MG, WEEKLY
     Route: 048
     Dates: start: 20191021, end: 20191130
  5. VINCRISTINE SULFATE. [Suspect]
     Active Substance: VINCRISTINE SULFATE
     Indication: B-CELL PROLYMPHOCYTIC LEUKAEMIA
     Dosage: 2 MILLIGRAM, ONCE (DAY 1, 29, 57)
     Route: 042
     Dates: start: 20191014
  6. METHOTREXATE SODIUM. [Suspect]
     Active Substance: METHOTREXATE SODIUM
     Indication: B-CELL PROLYMPHOCYTIC LEUKAEMIA
     Dosage: 95 MILLIGRAM, ONCE (DAY 1 AND 29)
     Route: 037
     Dates: start: 20191014
  7. MERCAPTOPURINE. [Suspect]
     Active Substance: MERCAPTOPURINE
     Indication: B-CELL PROLYMPHOCYTIC LEUKAEMIA
     Dosage: TABLET, 150 MG/125 MG, BID
     Route: 048
     Dates: start: 20191014, end: 20191130
  8. MERCAPTOPURINE. [Suspect]
     Active Substance: MERCAPTOPURINE
     Dosage: TABLET, 50 MILLIGRAM MON-WED-FRI/ 25 MILLIGRAM SUN-TUE-THURS-SAT
     Route: 048
     Dates: start: 20191216
  9. INCB018424 [Suspect]
     Active Substance: RUXOLITINIB
     Dosage: TABLET, 95 MILLIGRAM, QD (14 DAYS ON/OFF)
     Route: 048
     Dates: start: 20191216

REACTIONS (2)
  - Oesophagitis [Recovered/Resolved]
  - Pancreatitis [Recovered/Resolved]

NARRATIVE: CASE EVENT DATE: 20191129
